FAERS Safety Report 6240426-7 (Version None)
Quarter: 2009Q2

REPORT INFORMATION
  Report Type: 
  Country: None (occurrence: None)
  Receive Date: 20090623
  Receipt Date: 20090512
  Transmission Date: 20091009
  Serious: No
  Sender: FDA-Public Use
  Company Number: JP-ASTRAZENECA-2009SE02847

PATIENT
  Age: 72 Year
  Sex: Female

DRUGS (3)
  1. QUETIAPINE FUMARATE [Suspect]
     Route: 048
     Dates: start: 20071011, end: 20071017
  2. QUETIAPINE FUMARATE [Suspect]
     Route: 048
     Dates: start: 20071018, end: 20071112
  3. QUETIAPINE FUMARATE [Suspect]
     Route: 048
     Dates: start: 20071113, end: 20071128

REACTIONS (1)
  - THROMBOCYTOPENIA [None]
